FAERS Safety Report 19055968 (Version 1)
Quarter: 2021Q1

REPORT INFORMATION
  Report Type: Spontaneous
  Country: US (occurrence: US)
  Receive Date: 20210324
  Receipt Date: 20210324
  Transmission Date: 20210420
  Serious: Yes (Other)
  Sender: FDA-Public Use
  Company Number: US-AMGEN-USASP2021041853

PATIENT
  Age: 50 Year
  Sex: Male

DRUGS (2)
  1. XGEVA [Suspect]
     Active Substance: DENOSUMAB
     Indication: LIPOSARCOMA
     Dosage: 120 MILLIGRAM, QMO
     Route: 058
  2. PEGYLATED LIPOSOMAL DOXORUBICIN [Concomitant]
     Active Substance: DOXORUBICIN
     Indication: LIPOSARCOMA
     Dosage: 45 MILLIGRAM/SQ. METER

REACTIONS (5)
  - Exostosis of jaw [Unknown]
  - Fall [Unknown]
  - Disease progression [Unknown]
  - Spinal cord injury [Unknown]
  - Pathological fracture [Unknown]
